FAERS Safety Report 7349236-0 (Version None)
Quarter: 2011Q1

REPORT INFORMATION
  Report Type: 
  Country: None (occurrence: None)
  Receive Date: 20110314
  Receipt Date: 20110303
  Transmission Date: 20110831
  Serious: Yes (Other)
  Sender: FDA-Public Use
  Company Number: TH-PERRIGO-11TH001972

PATIENT
  Age: 11 Year

DRUGS (2)
  1. BETAMETHASONE DIPROPIONATE RX 0.05% 0N2 [Suspect]
     Indication: PSORIASIS
     Dosage: 100 G, UNK
     Route: 061
  2. HALOBETASOL PROPIONATE 0.05% 4C6 [Suspect]
     Indication: PSORIASIS
     Dosage: 275 G, UNK
     Route: 061

REACTIONS (3)
  - OFF LABEL USE [None]
  - INCORRECT DRUG ADMINISTRATION DURATION [None]
  - CUSHING'S SYNDROME [None]
